FAERS Safety Report 7674240-2 (Version None)
Quarter: 2011Q3

REPORT INFORMATION
  Report Type: 
  Country: None (occurrence: None)
  Receive Date: 20110810
  Receipt Date: 20110801
  Transmission Date: 20111222
  Serious: Yes (Hospitalization, Other)
  Sender: FDA-Public Use
  Company Number: DE-ELI_LILLY_AND_COMPANY-DE201105002737

PATIENT
  Age: 74 Year
  Sex: Female
  Weight: 90 kg

DRUGS (14)
  1. BISOPROLOL FUMARATE [Concomitant]
     Dosage: 5 MG, UNK
  2. TORSEMIDE [Concomitant]
     Dosage: 10 MG, BID
  3. POLYETHYLENE GLYCOL [Concomitant]
     Dosage: UNK, QD
  4. MARCUMAR [Concomitant]
     Dosage: UNK
  5. ASPIRIN [Concomitant]
     Dosage: 100 MG, UNK
  6. ACTRAPID                           /00030501/ [Concomitant]
     Dosage: UNK, PRN
  7. BYETTA [Suspect]
     Indication: TYPE 2 DIABETES MELLITUS
     Dosage: 10 UG, BID
     Route: 058
     Dates: start: 20110106, end: 20110201
  8. METFORMIN HCL [Concomitant]
  9. OMEPRAZOLE [Concomitant]
     Dosage: 20 MG, QD
  10. PENTAERYTHRITOL TETRANITRATE [Concomitant]
     Dosage: UNK, BID
  11. VALSARTAN [Concomitant]
     Dosage: 80 MG, QD
  12. ACTRAPHANE HM 30/70 [Concomitant]
     Dosage: 30 DF, UNK
     Route: 058
  13. TILIDIN [Concomitant]
     Dosage: UNK, BID
  14. SIMVASTATIN [Concomitant]
     Dosage: 20 MG, QD

REACTIONS (8)
  - CARDIOVASCULAR INSUFFICIENCY [None]
  - DERMATITIS ALLERGIC [None]
  - COAGULATION TEST ABNORMAL [None]
  - BLOOD PRESSURE DECREASED [None]
  - ORAL CANDIDIASIS [None]
  - ANAEMIA [None]
  - SKIN DISORDER [None]
  - HEPATIC ENZYME INCREASED [None]
